FAERS Safety Report 7610679-9 (Version None)
Quarter: 2011Q3

REPORT INFORMATION
  Report Type: 
  Country: None (occurrence: None)
  Receive Date: 20110715
  Receipt Date: 20110712
  Transmission Date: 20111222
  Serious: Yes (Other)
  Sender: FDA-Public Use
  Company Number: US-PFIZER INC-2011157723

PATIENT
  Sex: Male
  Weight: 74.83 kg

DRUGS (3)
  1. ACETYLSALICYLIC ACID [Concomitant]
     Dosage: UNK
  2. LIPITOR [Suspect]
     Indication: BLOOD CHOLESTEROL INCREASED
     Dosage: 20 MG, 1X/DAY
     Route: 048
     Dates: start: 20090101
  3. LIPITOR [Suspect]
     Dosage: 40 MG, 1X/DAY
     Dates: start: 20100101

REACTIONS (2)
  - AMNESIA [None]
  - HIGH DENSITY LIPOPROTEIN DECREASED [None]
